FAERS Safety Report 6156620-X (Version None)
Quarter: 2009Q2

REPORT INFORMATION
  Report Type: 
  Country: None (occurrence: None)
  Receive Date: 20090416
  Receipt Date: 20090407
  Transmission Date: 20091009
  Serious: Yes (Other)
  Sender: FDA-Public Use
  Company Number: GB-ROCHE-626430

PATIENT
  Age: 28 Year
  Sex: Female
  Weight: 78 kg

DRUGS (2)
  1. XENICAL [Suspect]
     Indication: OBESITY
     Route: 048
     Dates: start: 20090126, end: 20090304
  2. NORDETTE-28 [Concomitant]
     Indication: CONTRACEPTION
     Route: 048

REACTIONS (2)
  - ABORTION SPONTANEOUS [None]
  - DIARRHOEA [None]
